FAERS Safety Report 9270927 (Version 1)
Quarter: 2013Q2

REPORT INFORMATION
  Report Type: Spontaneous
  Country: DE (occurrence: DE)
  Receive Date: 20130506
  Receipt Date: 20130506
  Transmission Date: 20140414
  Serious: Yes (Other)
  Sender: FDA-Public Use
  Company Number: DE-009507513-1304DEU017275

PATIENT
  Sex: Female

DRUGS (2)
  1. NUVARING [Suspect]
     Indication: CONTRACEPTION
     Dosage: UNK
     Dates: start: 201011
  2. CLEXANE (ENOXAPARIN SODIUM) [Concomitant]
     Dosage: UNK
     Route: 058
     Dates: start: 20130422

REACTIONS (2)
  - Synovectomy [Unknown]
  - Metrorrhagia [Unknown]
